FAERS Safety Report 10202037 (Version 4)
Quarter: 2015Q3

REPORT INFORMATION
  Report Type: Spontaneous
  Country: CA (occurrence: CA)
  Receive Date: 20140528
  Receipt Date: 20150824
  Transmission Date: 20151125
  Serious: Yes (Death, Hospitalization)
  Sender: FDA-Public Use
  Company Number: CA-GLAXOSMITHKLINE-A1073203A

PATIENT
  Age: 53 Year
  Sex: Female

DRUGS (4)
  1. INSULIN [Concomitant]
     Active Substance: INSULIN NOS
     Indication: PRODUCT USED FOR UNKNOWN INDICATION
     Dosage: UNK
  2. TAFINLAR [Suspect]
     Active Substance: DABRAFENIB MESYLATE
     Indication: METASTATIC MALIGNANT MELANOMA
     Dosage: 150 MG, BID
     Route: 065
  3. TAFINLAR [Suspect]
     Active Substance: DABRAFENIB MESYLATE
     Dosage: 300 DAILY
  4. METFORMIN [Concomitant]
     Active Substance: METFORMIN HYDROCHLORIDE
     Indication: PRODUCT USED FOR UNKNOWN INDICATION

REACTIONS (13)
  - Nausea [Unknown]
  - Headache [Unknown]
  - Hypoglycaemia [Unknown]
  - Fatigue [Unknown]
  - Chills [Unknown]
  - Malaise [Fatal]
  - Hyperglycaemia [Unknown]
  - Blood glucose decreased [Unknown]
  - Myalgia [Unknown]
  - Faeces soft [Unknown]
  - Blood glucose increased [Unknown]
  - Acrochordon [Unknown]
  - Pyrexia [Unknown]

NARRATIVE: CASE EVENT DATE: 201405
